FAERS Safety Report 18470705 (Version 8)
Quarter: 2023Q2

REPORT INFORMATION
  Report Type: Report from Study
  Country: US (occurrence: US)
  Receive Date: 20201105
  Receipt Date: 20230515
  Transmission Date: 20230722
  Serious: Yes (Hospitalization, Other)
  Sender: FDA-Public Use
  Company Number: US-TAKEDA-2020TUS047505

PATIENT
  Sex: Female
  Weight: 59 kg

DRUGS (29)
  1. TEDUGLUTIDE [Suspect]
     Active Substance: TEDUGLUTIDE
     Indication: Crohn^s disease
     Dosage: 2.9 MILLIGRAM, QD
     Route: 058
  2. TEDUGLUTIDE [Suspect]
     Active Substance: TEDUGLUTIDE
     Indication: Crohn^s disease
     Dosage: 2.9 MILLIGRAM, QD
     Route: 058
  3. TEDUGLUTIDE [Suspect]
     Active Substance: TEDUGLUTIDE
     Indication: Crohn^s disease
     Dosage: 2.9 MILLIGRAM, QD
     Route: 058
  4. TEDUGLUTIDE [Suspect]
     Active Substance: TEDUGLUTIDE
     Indication: Crohn^s disease
     Dosage: 2.9 MILLIGRAM, QD
     Route: 058
  5. TEDUGLUTIDE [Suspect]
     Active Substance: TEDUGLUTIDE
     Indication: Short-bowel syndrome
     Dosage: 2.9 MILLIGRAM, QD
     Route: 058
  6. TEDUGLUTIDE [Suspect]
     Active Substance: TEDUGLUTIDE
     Indication: Short-bowel syndrome
     Dosage: 2.9 MILLIGRAM, QD
     Route: 058
  7. TEDUGLUTIDE [Suspect]
     Active Substance: TEDUGLUTIDE
     Indication: Short-bowel syndrome
     Dosage: 2.9 MILLIGRAM, QD
     Route: 058
  8. TEDUGLUTIDE [Suspect]
     Active Substance: TEDUGLUTIDE
     Indication: Short-bowel syndrome
     Dosage: 2.9 MILLIGRAM, QD
     Route: 058
  9. TEDUGLUTIDE [Suspect]
     Active Substance: TEDUGLUTIDE
     Dosage: 2.9 MILLIGRAM, QOD
     Route: 058
  10. TEDUGLUTIDE [Suspect]
     Active Substance: TEDUGLUTIDE
     Dosage: 2.9 MILLIGRAM, QOD
     Route: 058
  11. TEDUGLUTIDE [Suspect]
     Active Substance: TEDUGLUTIDE
     Dosage: 2.9 MILLIGRAM, QOD
     Route: 058
  12. TEDUGLUTIDE [Suspect]
     Active Substance: TEDUGLUTIDE
     Dosage: 2.9 MILLIGRAM, QOD
     Route: 058
  13. TEDUGLUTIDE [Suspect]
     Active Substance: TEDUGLUTIDE
     Dosage: 2.9 MILLIGRAM, QD
     Route: 058
  14. TEDUGLUTIDE [Suspect]
     Active Substance: TEDUGLUTIDE
     Dosage: 2.9 MILLIGRAM, QD
     Route: 058
  15. TEDUGLUTIDE [Suspect]
     Active Substance: TEDUGLUTIDE
     Dosage: 2.9 MILLIGRAM, QD
     Route: 058
  16. TEDUGLUTIDE [Suspect]
     Active Substance: TEDUGLUTIDE
     Dosage: 2.9 MILLIGRAM, QD
     Route: 058
  17. VITAMIN D3 [Concomitant]
     Active Substance: CHOLECALCIFEROL
     Dosage: 10 MICROGRAM
  18. CALCIUM\CHOLECALCIFEROL [Concomitant]
     Active Substance: CALCIUM\CHOLECALCIFEROL
  19. IRON [Concomitant]
     Active Substance: IRON
     Dosage: 159 MILLIGRAM
  20. PROMETHAZINE HYDROCHLORIDE [Concomitant]
     Active Substance: PROMETHAZINE HYDROCHLORIDE
     Dosage: 12.5 MILLIGRAM
  21. COMPAZINE [Concomitant]
     Active Substance: PROCHLORPERAZINE MALEATE
     Dosage: 10 MILLIGRAM
  22. URSODIOL [Concomitant]
     Active Substance: URSODIOL
     Dosage: 250 MILLIGRAM
  23. IMODIUM A-D [Concomitant]
     Active Substance: LOPERAMIDE HYDROCHLORIDE
     Dosage: 2 MILLIGRAM
  24. OMEPRAZOLE [Concomitant]
     Active Substance: OMEPRAZOLE
  25. CALCIUM CARBONATE [Concomitant]
     Active Substance: CALCIUM CARBONATE
  26. LOPERAMIDE [Concomitant]
     Active Substance: LOPERAMIDE
     Dosage: 1 MG/7.5 ML SOLN
     Route: 065
  27. TINCTURE IODINE [Concomitant]
     Dosage: UNK
     Route: 065
  28. LOMOTIL [Concomitant]
     Active Substance: ATROPINE SULFATE\DIPHENOXYLATE HYDROCHLORIDE
     Dosage: UNK
     Route: 065
  29. XELJANZ [Concomitant]
     Active Substance: TOFACITINIB CITRATE
     Dosage: 10 MILLIGRAM
     Route: 065

REACTIONS (13)
  - Crohn^s disease [Unknown]
  - Diarrhoea [Not Recovered/Not Resolved]
  - Injection site scar [Unknown]
  - Weight decreased [Unknown]
  - Drug ineffective [Unknown]
  - Gastrointestinal stoma output increased [Unknown]
  - Eosinophilic oesophagitis [Unknown]
  - Treatment noncompliance [Unknown]
  - Insurance issue [Unknown]
  - Injection site erythema [Unknown]
  - Injection site swelling [Unknown]
  - Product dose omission issue [Unknown]
  - Inappropriate schedule of product administration [Unknown]
